FAERS Safety Report 8485794-0 (Version None)
Quarter: 2012Q2

REPORT INFORMATION
  Report Type: 
  Country: None (occurrence: None)
  Receive Date: 20120626
  Receipt Date: 20120619
  Transmission Date: 20120825
  Serious: Yes (Disabling, Other)
  Sender: FDA-Public Use
  Company Number: GER/UKI/12/0024729

PATIENT
  Age: 47 Year
  Sex: Male
  Weight: 111 kg

DRUGS (6)
  1. ISOSORBIDE MONONITRATE [Concomitant]
  2. BISOPROLOL FUMARATE [Concomitant]
  3. SIMVASTATIN [Concomitant]
  4. NITROGLYCERIN [Concomitant]
  5. ASPIRIN [Concomitant]
  6. CLOPIDOGREL [Suspect]
     Indication: STENT PLACEMENT
     Dosage: 75 MG, 1 IN 1 D, ORAL
     Route: 048
     Dates: start: 20120510, end: 20120522

REACTIONS (2)
  - RASH [None]
  - DYSPEPSIA [None]
